FAERS Safety Report 7776248-5 (Version None)
Quarter: 2011Q3

REPORT INFORMATION
  Report Type: 
  Country: None (occurrence: None)
  Receive Date: 20110921
  Receipt Date: 20110914
  Transmission Date: 20111222
  Serious: Yes (Other)
  Sender: FDA-Public Use
  Company Number: 2011SP043592

PATIENT
  Sex: Female

DRUGS (1)
  1. IMPLANON [Suspect]
     Indication: CONTRACEPTION
     Dosage: 1 DF;UNK;SBDE
     Dates: start: 20110818, end: 20110905

REACTIONS (3)
  - SKIN INFECTION [None]
  - PRODUCT STERILITY LACKING [None]
  - IMPLANT SITE NECROSIS [None]
